FAERS Safety Report 9707755 (Version 2)
Quarter: 2013Q4

REPORT INFORMATION
  Report Type: Spontaneous
  Country: US (occurrence: None)
  Receive Date: 20131121
  Receipt Date: 20131203
  Transmission Date: 20140711
  Serious: Yes (Hospitalization)
  Sender: FDA-Public Use
  Company Number: IPC201311-000476

PATIENT
  Age: 50 Year
  Sex: Female

DRUGS (12)
  1. METFORMIN HYDROCHLORIDE [Suspect]
  2. HYDROCHLOROTHIAZIDE (HYDROCHLOROTHIAZIDE) (HYDROCHLOROTHIAZIDE) [Suspect]
  3. CELECOXIB [Suspect]
     Indication: ARTHRALGIA
  4. CANDESARTAN [Suspect]
  5. L-THYROXINE [Suspect]
  6. ACETAMINOPHEN/CODEINE [Suspect]
  7. ASPIRIN [Suspect]
  8. SIMVASTATIN (SIMVASTATIN) (SIMVASTATIN) [Suspect]
  9. OMEPRAZOLE (OMEPRAZOLE) (OMEPRAZOLE) [Suspect]
  10. PREGABALIN [Suspect]
  11. TIZANIDINE [Suspect]
  12. ARIPIPRAZOLE [Suspect]

REACTIONS (14)
  - Pancreatitis [None]
  - Lactic acidosis [None]
  - Toxicity to various agents [None]
  - Renal failure [None]
  - Suicide attempt [None]
  - Intentional overdose [None]
  - Hyperglycaemia [None]
  - Haematemesis [None]
  - Haematochezia [None]
  - Nephrotic syndrome [None]
  - Sinus tachycardia [None]
  - Electrocardiogram QRS complex prolonged [None]
  - Ventricular extrasystoles [None]
  - Drug interaction [None]
